FAERS Safety Report 24125231 (Version 1)
Quarter: 2024Q3

REPORT INFORMATION
  Report Type: Spontaneous
  Country: US (occurrence: US)
  Receive Date: 20240723
  Receipt Date: 20240723
  Transmission Date: 20241017
  Serious: No
  Sender: STEMLINE THERAPEUTICS
  Company Number: US-Stemline Therapeutics, Inc.-2024ST002789

PATIENT
  Age: 53 Year
  Sex: Female

DRUGS (2)
  1. ORSERDU [Suspect]
     Active Substance: ELACESTRANT
     Indication: Breast cancer
     Route: 048
     Dates: start: 20240422
  2. TRUQAP [Suspect]
     Active Substance: CAPIVASERTIB
     Indication: Breast cancer
     Dosage: 400MG BY MOUTH EVERY 12 HOURS ON DAYS 1-4, 8-11, 11-18, 22-25 OF A 28 DAY CYCLE
     Route: 048
     Dates: start: 20240422

REACTIONS (12)
  - Drug hypersensitivity [Unknown]
  - Gastrointestinal disorder [Unknown]
  - Restlessness [Unknown]
  - Feeling abnormal [Unknown]
  - White blood cell count decreased [Unknown]
  - Oral mucosal blistering [Unknown]
  - Drug hypersensitivity [Unknown]
  - Chills [Unknown]
  - Abdominal discomfort [Unknown]
  - Abdominal pain upper [Unknown]
  - Fatigue [Unknown]
  - Diarrhoea [Unknown]
